FAERS Safety Report 9484951 (Version 1)
Quarter: 2013Q3

REPORT INFORMATION
  Report Type: Spontaneous
  Country: US (occurrence: US)
  Receive Date: 20130828
  Receipt Date: 20130828
  Transmission Date: 20140515
  Serious: No
  Sender: FDA-Public Use
  Company Number: US-ABBOTT-13P-163-1121152-00

PATIENT
  Sex: Male
  Weight: 77.18 kg

DRUGS (2)
  1. ANDROGEL [Suspect]
     Indication: MUSCLE ATROPHY
     Dosage: ONE PUMP DAILY
  2. ANDROGEL [Suspect]
     Indication: MUSCULAR WEAKNESS

REACTIONS (2)
  - Drug ineffective [Unknown]
  - Off label use [Unknown]
